FAERS Safety Report 24630877 (Version 3)
Quarter: 2025Q3

REPORT INFORMATION
  Report Type: Spontaneous
  Country: US (occurrence: US)
  Receive Date: 20241118
  Receipt Date: 20250929
  Transmission Date: 20251021
  Serious: Yes (Death)
  Sender: SECURA BIO
  Company Number: US-SECURA BIO, INC.-2024-SECUR-US000001

PATIENT

DRUGS (2)
  1. COPIKTRA [Suspect]
     Active Substance: DUVELISIB
     Indication: Peripheral T-cell lymphoma unspecified
     Dosage: 75 MG, BID
     Route: 048
     Dates: start: 20240108
  2. COPIKTRA [Suspect]
     Active Substance: DUVELISIB
     Indication: Non-Hodgkin^s lymphoma

REACTIONS (3)
  - Death [Fatal]
  - Prescribed overdose [Not Recovered/Not Resolved]
  - Product use in unapproved indication [Not Recovered/Not Resolved]

NARRATIVE: CASE EVENT DATE: 20240102
